FAERS Safety Report 18805437 (Version 2)
Quarter: 2021Q1

REPORT INFORMATION
  Report Type: Report from Study
  Country: JO (occurrence: JO)
  Receive Date: 20210128
  Receipt Date: 20210212
  Transmission Date: 20210419
  Serious: Yes (Other)
  Sender: FDA-Public Use
  Company Number: JO-PFIZER INC-2021077657

PATIENT
  Age: 58 Year
  Sex: Male
  Weight: 77 kg

DRUGS (5)
  1. LEUCOVORIN. [Suspect]
     Active Substance: LEUCOVORIN
     Indication: RECTAL ADENOCARCINOMA
     Dosage: 760 MG
     Route: 042
     Dates: start: 20201012, end: 20201207
  2. AVELUMAB [Suspect]
     Active Substance: AVELUMAB
     Dosage: 762 MG
     Route: 042
     Dates: start: 20201207, end: 20201207
  3. OXALIPLATIN. [Suspect]
     Active Substance: OXALIPLATIN
     Indication: RECTAL ADENOCARCINOMA
     Dosage: 161 MG
     Route: 042
     Dates: start: 20201012, end: 20201207
  4. AVELUMAB [Suspect]
     Active Substance: AVELUMAB
     Indication: RECTAL ADENOCARCINOMA
     Dosage: 762 MG
     Route: 042
     Dates: start: 20201012
  5. FLUOROURACIL. [Suspect]
     Active Substance: FLUOROURACIL
     Indication: RECTAL ADENOCARCINOMA
     Dosage: 4560 MG
     Route: 042
     Dates: start: 20201012, end: 20201207

REACTIONS (1)
  - SARS-CoV-2 test positive [Recovered/Resolved]

NARRATIVE: CASE EVENT DATE: 20210113
